FAERS Safety Report 6253954-5 (Version None)
Quarter: 2009Q3

REPORT INFORMATION
  Report Type: 
  Country: None (occurrence: None)
  Receive Date: 20090702
  Receipt Date: 20090624
  Transmission Date: 20100115
  Serious: Yes (Hospitalization, Other)
  Sender: FDA-Public Use
  Company Number: DE-JNJFOC-20090608736

PATIENT
  Age: 42 Year
  Sex: Male

DRUGS (5)
  1. HALDOL DECANOAT [Suspect]
     Indication: DRUG USE FOR UNKNOWN INDICATION
     Dosage: SINCE MONTHS
     Route: 048
  2. LEPONEX [Suspect]
     Indication: DRUG USE FOR UNKNOWN INDICATION
     Route: 048
  3. HYDROCHLOROTHIAZIDE [Suspect]
     Indication: DIURETIC THERAPY
     Route: 048
  4. AMLODIPINE [Concomitant]
     Route: 048
  5. RAMIPRIL [Concomitant]
     Route: 048

REACTIONS (4)
  - DRY MOUTH [None]
  - HYPONATRAEMIA [None]
  - POLYDIPSIA [None]
  - SOMNOLENCE [None]
